FAERS Safety Report 6277894-0 (Version None)
Quarter: 2009Q3

REPORT INFORMATION
  Report Type: 
  Country: None (occurrence: None)
  Receive Date: 20090722
  Receipt Date: 20090717
  Transmission Date: 20100115
  Serious: Yes (Other)
  Sender: FDA-Public Use
  Company Number: US-MERCK-0711USA01361

PATIENT
  Age: 72 Year
  Sex: Female
  Weight: 89 kg

DRUGS (5)
  1. FOSAMAX [Suspect]
     Indication: OSTEOPOROSIS
     Route: 048
     Dates: start: 19970101, end: 20061101
  2. WARFARIN [Concomitant]
     Route: 065
  3. DIGOXIN [Concomitant]
     Route: 065
  4. COZAAR [Concomitant]
     Route: 048
  5. LEVOXYL [Concomitant]
     Route: 065

REACTIONS (1)
  - ATRIAL FIBRILLATION [None]
